FAERS Safety Report 15315371 (Version 1)
Quarter: 2018Q3

REPORT INFORMATION
  Report Type: Spontaneous
  Country: US (occurrence: US)
  Receive Date: 20180815
  Receipt Date: 20180815
  Transmission Date: 20181010
  Serious: Yes (Life-Threatening, Disabling)
  Sender: FDA-Public Use
  Company Number: None

PATIENT
  Age: 35 Year
  Sex: Female
  Weight: 85.5 kg

DRUGS (4)
  1. LAMICTAL [Concomitant]
     Active Substance: LAMOTRIGINE
  2. OMIPERAZOL [Concomitant]
  3. KLONOPIN [Suspect]
     Active Substance: CLONAZEPAM
     Indication: ANXIETY
     Dosage: ?          QUANTITY:1 CAPSULE(S);?
     Route: 048
  4. CYMBALTA [Concomitant]
     Active Substance: DULOXETINE HYDROCHLORIDE

REACTIONS (12)
  - Paraesthesia [None]
  - Burning sensation [None]
  - Tremor [None]
  - Crying [None]
  - Adrenal disorder [None]
  - Musculoskeletal stiffness [None]
  - Arthralgia [None]
  - Bedridden [None]
  - Dizziness [None]
  - Disturbance in attention [None]
  - Drug withdrawal syndrome [None]
  - Amnesia [None]

NARRATIVE: CASE EVENT DATE: 20180115
